FAERS Safety Report 20600241 (Version 1)
Quarter: 2022Q1

REPORT INFORMATION
  Report Type: Spontaneous
  Country: CN (occurrence: None)
  Receive Date: 20220316
  Receipt Date: 20220316
  Transmission Date: 20220423
  Serious: Yes (Other)
  Sender: FDA-Public Use
  Company Number: CN-ROCHE-3046723

PATIENT
  Age: 85 Year
  Sex: Female
  Weight: 64 kg

DRUGS (17)
  1. MABTHERA [Suspect]
     Active Substance: RITUXIMAB
     Indication: Diffuse large B-cell lymphoma stage IV
     Dosage: (375 MG/M2) 600MG ON DAY 0
     Route: 065
  2. MABTHERA [Suspect]
     Active Substance: RITUXIMAB
     Dosage: ON 16 JUN 2020, 14 JUL 2020, 21 AUG 2020, 23 SEP 2020 AND 30 OCT 2020, (500MG)?375MG/M2, ON DAY 0
     Route: 065
  3. MABTHERA [Suspect]
     Active Substance: RITUXIMAB
     Dosage: ON 03 JAN 2021 AND 22 FEB 2021, (375MG/M2) 600MG ON DAY 0
     Route: 065
  4. MABTHERA [Suspect]
     Active Substance: RITUXIMAB
     Dosage: ON 04 JUN 2021 AND 19 JUL 2021, (375MG/M2) 600MG ON DAY 0
     Route: 065
  5. GAZYVA [Suspect]
     Active Substance: OBINUTUZUMAB
     Indication: Diffuse large B-cell lymphoma stage IV
     Dosage: ON 31 AUG 2021, 02 OCT 2021, 05 NOV 2021, 17 JAN 2022 AND 06 MAR 2022, ON DAY 0
     Route: 065
  6. VALSARTAN [Concomitant]
     Active Substance: VALSARTAN
     Indication: Hypertension
     Route: 048
  7. VINDESINE [Concomitant]
     Active Substance: VINDESINE
     Indication: Diffuse large B-cell lymphoma stage IV
     Dosage: ON DAY 1
  8. CYCLOPHOSPHAMIDE [Concomitant]
     Active Substance: CYCLOPHOSPHAMIDE
     Indication: Diffuse large B-cell lymphoma stage IV
     Dosage: ON DAY 1
  9. PREDNISONE ACETATE [Concomitant]
     Active Substance: PREDNISONE ACETATE
     Indication: Diffuse large B-cell lymphoma stage IV
     Dosage: ON DAY 1-5
  10. PEGYLATED RECOMBINANT HUMAN GRANULOCYTE COLONY-STIMULATING FACTOR [Concomitant]
     Route: 058
  11. THROMBOPOIETIN [Concomitant]
     Active Substance: THROMBOPOIETIN
     Route: 058
  12. SODIUM NITROPRUSSIDE [Concomitant]
     Active Substance: SODIUM NITROPRUSSIDE
     Indication: Cardiac failure
     Route: 042
  13. DOPAMINE [Concomitant]
     Active Substance: DOPAMINE HYDROCHLORIDE
     Indication: Cardiac failure
     Route: 042
  14. LENALIDOMIDE [Concomitant]
     Active Substance: LENALIDOMIDE
     Indication: Diffuse large B-cell lymphoma stage IV
     Dosage: ON 16 JUN 2020, 14 JUL 2020, 21 AUG 2020, 23 SEP 2020 AND 30 OCT 2020, ON DAY 1-21
  15. LENALIDOMIDE [Concomitant]
     Active Substance: LENALIDOMIDE
     Dosage: ON 03 JAN 2021 AND 22 FEB 2021, ON DAY 1-14
  16. ZANUBRUTINIB [Concomitant]
     Active Substance: ZANUBRUTINIB
     Indication: Diffuse large B-cell lymphoma stage IV
     Dosage: ON 04 JUN 2021 AND 19 JUL 2021, ON DAY 1-14
     Route: 048
  17. ZANUBRUTINIB [Concomitant]
     Active Substance: ZANUBRUTINIB
     Dosage: ON 31 AUG 2021, 02 OCT 2021, 05 NOV 2021, 17 JAN 2022 AND 06 MAR 2022, ON DAY 1-14
     Route: 048

REACTIONS (5)
  - Pneumonia [Unknown]
  - Myelosuppression [Recovering/Resolving]
  - Angina pectoris [Unknown]
  - Rash [Unknown]
  - Off label use [Unknown]

NARRATIVE: CASE EVENT DATE: 20200514
